FAERS Safety Report 5419056-2 (Version None)
Quarter: 2007Q3

REPORT INFORMATION
  Report Type: 
  Country: None (occurrence: None)
  Receive Date: 20070820
  Receipt Date: 20070810
  Transmission Date: 20080115
  Serious: Yes (Hospitalization)
  Sender: FDA-Public Use
  Company Number: PHBS2007BR13352

PATIENT
  Age: 22 Year
  Sex: Female
  Weight: 84 kg

DRUGS (1)
  1. PARLODEL [Suspect]
     Indication: LACTATION DISORDER

REACTIONS (4)
  - ABORTION INCOMPLETE [None]
  - DRUG EXPOSURE DURING PREGNANCY [None]
  - INTRA-UTERINE DEATH [None]
  - UTERINE DILATION AND CURETTAGE [None]
